FAERS Safety Report 17945321 (Version 2)
Quarter: 2020Q3

REPORT INFORMATION
  Report Type: Spontaneous
  Country: US (occurrence: US)
  Receive Date: 20200625
  Receipt Date: 20200807
  Transmission Date: 20201103
  Serious: No
  Sender: FDA-Public Use
  Company Number: US-ASTRAZENECA-2020SE80266

PATIENT
  Age: 28216 Day
  Sex: Male
  Weight: 86.2 kg

DRUGS (4)
  1. ALBUTEROL NEBULIZER [Concomitant]
     Active Substance: ALBUTEROL
     Indication: ASTHMA
     Dosage: UNKNOWN
     Route: 055
  2. FLONASE [Concomitant]
     Active Substance: FLUTICASONE PROPIONATE
     Indication: DRUG HYPERSENSITIVITY
     Route: 045
  3. SYMBICORT [Suspect]
     Active Substance: BUDESONIDE\FORMOTEROL FUMARATE DIHYDRATE
     Indication: ASTHMA
     Dosage: 160/4.5 MCGS 2 PUFFS TWICE DAILY
     Route: 055
     Dates: start: 2006
  4. VENTOLIN HFA [Concomitant]
     Active Substance: ALBUTEROL SULFATE
     Indication: ASTHMA
     Dosage: 90.0UG/INHAL AS REQUIRED
     Route: 053

REACTIONS (7)
  - Multiple allergies [Unknown]
  - Intentional product misuse [Unknown]
  - Intentional device misuse [Unknown]
  - Lung disorder [Unknown]
  - Dyspnoea [Unknown]
  - Device malfunction [Unknown]
  - Device malfunction [Unknown]

NARRATIVE: CASE EVENT DATE: 201912
